FAERS Safety Report 6917027 (Version 3)
Quarter: 2020Q3

REPORT INFORMATION
  Report Type: Report from Study
  Country: US (occurrence: US)
  Receive Date: 20090224
  Receipt Date: 20200413
  Transmission Date: 20201105
  Serious: Yes (Life-Threatening, Hospitalization)
  Sender: FDA-Public Use
  Company Number: US-JNJFOC-20090204806

PATIENT
  Age: 2 Year
  Sex: Male
  Weight: 13 kg

DRUGS (1)
  1. CISAPRIDE [Suspect]
     Active Substance: CISAPRIDE
     Indication: GASTROOESOPHAGEAL REFLUX DISEASE
     Dosage: ROUT? PGJ
     Route: 050
     Dates: start: 20090213, end: 20090215

REACTIONS (1)
  - Vascular device infection [Unknown]

NARRATIVE: CASE EVENT DATE: 20090215
